FAERS Safety Report 10588250 (Version 3)
Quarter: 2014Q4

REPORT INFORMATION
  Report Type: Spontaneous
  Country: JP (occurrence: JP)
  Receive Date: 20141117
  Receipt Date: 20141202
  Transmission Date: 20150529
  Serious: Yes (Life-Threatening, Hospitalization)
  Sender: FDA-Public Use
  Company Number: JP-BRISTOL-MYERS SQUIBB COMPANY-21371331

PATIENT
  Age: 85 Year
  Sex: Male
  Weight: 49 kg

DRUGS (7)
  1. JANUVIA [Concomitant]
     Active Substance: SITAGLIPTIN PHOSPHATE
  2. FEBUXOSTAT. [Concomitant]
     Active Substance: FEBUXOSTAT
  3. FUROSEMIDE. [Concomitant]
     Active Substance: FUROSEMIDE
  4. THYRADIN S [Concomitant]
     Active Substance: LEVOTHYROXINE SODIUM
  5. GLUBES [Concomitant]
     Active Substance: MITIGLINIDE CALCIUM HYDRATE\VOGLIBOSE
  6. ELIQUIS [Suspect]
     Active Substance: APIXABAN
     Indication: CEREBROVASCULAR ACCIDENT PROPHYLAXIS
     Dosage: 2.5MG FROM 11-JUN-2014 TO 12-JUL-2014.
     Route: 048
     Dates: start: 20140611, end: 20140712
  7. EPLERENONE. [Concomitant]
     Active Substance: EPLERENONE

REACTIONS (3)
  - Gastric mucosal lesion [Recovered/Resolved]
  - Duodenal ulcer [Recovered/Resolved]
  - Melaena [Recovered/Resolved]

NARRATIVE: CASE EVENT DATE: 20140712
